FAERS Safety Report 24804887 (Version 1)
Quarter: 2025Q1

REPORT INFORMATION
  Report Type: Spontaneous
  Country: US (occurrence: US)
  Receive Date: 20250103
  Receipt Date: 20250103
  Transmission Date: 20250409
  Serious: Yes (Other)
  Sender: NOVARTIS
  Company Number: US-002147023-NVSC2024US246378

PATIENT

DRUGS (1)
  1. KESIMPTA [Suspect]
     Active Substance: OFATUMUMAB
     Indication: Multiple sclerosis
     Route: 065

REACTIONS (7)
  - Blindness transient [Unknown]
  - Chills [Unknown]
  - Hyperhidrosis [Unknown]
  - Photopsia [Unknown]
  - Insomnia [Unknown]
  - Flushing [Unknown]
  - Pain [Unknown]
